FAERS Safety Report 23272196 (Version 1)
Quarter: 2023Q4

REPORT INFORMATION
  Report Type: Spontaneous
  Country: US (occurrence: US)
  Receive Date: 20231207
  Receipt Date: 20231207
  Transmission Date: 20240110
  Serious: No
  Sender: FDA-Public Use
  Company Number: US-ACELLA PHARMACEUTICALS, LLC-2023ALO00052

PATIENT
  Sex: Male

DRUGS (2)
  1. DHIVY [Suspect]
     Active Substance: CARBIDOPA\LEVODOPA
     Dosage: UNK
  2. ENTACAPONE [Concomitant]
     Active Substance: ENTACAPONE

REACTIONS (4)
  - Anger [Unknown]
  - Ill-defined disorder [Unknown]
  - Intentional product misuse [Not Recovered/Not Resolved]
  - Depressed mood [Unknown]
